FAERS Safety Report 18844467 (Version 1)
Quarter: 2021Q1

REPORT INFORMATION
  Report Type: Report from Study
  Country: US (occurrence: US)
  Receive Date: 20210203
  Receipt Date: 20210203
  Transmission Date: 20210419
  Serious: No
  Sender: FDA-Public Use
  Company Number: US-EXELIXIS-CABO-20034388

PATIENT
  Age: 71 Year
  Sex: Male

DRUGS (2)
  1. CABOMETYX [Suspect]
     Active Substance: CABOZANTINIB S-MALATE
     Indication: RENAL CELL CARCINOMA
     Dosage: 40 MG, QD
     Dates: start: 20200929
  2. CABOMETYX [Suspect]
     Active Substance: CABOZANTINIB S-MALATE
     Dosage: 60 MG, QD
     Dates: start: 20201124

REACTIONS (18)
  - Blister [Recovering/Resolving]
  - Chills [Recovering/Resolving]
  - Dry mouth [Unknown]
  - Nausea [Not Recovered/Not Resolved]
  - Flatulence [Recovering/Resolving]
  - Rash pruritic [Recovering/Resolving]
  - Constipation [Recovering/Resolving]
  - Weight decreased [Recovered/Resolved]
  - Vomiting [Unknown]
  - Abdominal pain [Recovering/Resolving]
  - Anxiety [Unknown]
  - Arrhythmia [Unknown]
  - Dry throat [Unknown]
  - Decreased appetite [Not Recovered/Not Resolved]
  - Stomatitis [Recovered/Resolved]
  - Blood pressure increased [Recovering/Resolving]
  - Dysgeusia [Recovering/Resolving]
  - Dysphonia [Recovering/Resolving]

NARRATIVE: CASE EVENT DATE: 20201209
